FAERS Safety Report 8051913-3 (Version None)
Quarter: 2012Q1

REPORT INFORMATION
  Report Type: 
  Country: None (occurrence: None)
  Receive Date: 20120118
  Receipt Date: 20120105
  Transmission Date: 20120608
  Serious: Yes (Other)
  Sender: FDA-Public Use
  Company Number: CA-JNJFOC-20120103084

PATIENT
  Sex: Female
  Weight: 72 kg

DRUGS (10)
  1. ENTOCORT EC [Concomitant]
     Route: 065
  2. IBUPROFEN [Concomitant]
     Route: 065
  3. REMICADE [Suspect]
     Indication: CROHN'S DISEASE
     Route: 042
     Dates: start: 20071101
  4. PENTASA [Concomitant]
     Route: 065
  5. PREVACID [Concomitant]
     Route: 065
  6. ATENOLOL [Concomitant]
     Route: 065
  7. ESTROGEN/PROGESTERONE [Concomitant]
     Route: 065
  8. IMURAN [Concomitant]
     Route: 065
  9. TYLENOL W/ CODEINE NO. 3 [Concomitant]
     Route: 065
  10. GRAVOL TAB [Concomitant]
     Route: 065

REACTIONS (1)
  - UVEITIS [None]
